FAERS Safety Report 4434563-7 (Version None)
Quarter: 2004Q3

REPORT INFORMATION
  Report Type: 
  Country: None (occurrence: None)
  Receive Date: 20040721
  Receipt Date: 20031112
  Transmission Date: 20050211
  Serious: Yes (Life-Threatening, Hospitalization)
  Sender: FDA-Public Use
  Company Number: WAES 0311USA01412

PATIENT
  Age: 69 Year
  Sex: Female

DRUGS (4)
  1. VIOXX [Suspect]
     Dosage: 25 MG/DAILY/PO
     Route: 048
     Dates: start: 20030101, end: 20030101
  2. PREVACID [Concomitant]
  3. PREDNISONE [Concomitant]
  4. TRAZODONE HCL [Concomitant]

REACTIONS (1)
  - RENAL FAILURE [None]
